FAERS Safety Report 8253155-5 (Version None)
Quarter: 2012Q2

REPORT INFORMATION
  Report Type: 
  Country: None (occurrence: None)
  Receive Date: 20120402
  Receipt Date: 20120305
  Transmission Date: 20120825
  Serious: No
  Sender: FDA-Public Use
  Company Number: US-AMGEN-USASP2012014643

PATIENT
  Age: 58 Year
  Sex: Male

DRUGS (3)
  1. ENBREL [Suspect]
     Indication: RHEUMATOID ARTHRITIS
     Dosage: 50 MG, QWK
     Dates: start: 20120229
  2. METHOTREXATE [Concomitant]
     Dosage: 8 MG, UNK
     Dates: start: 19950101
  3. PLAQUENIL [Concomitant]
     Dosage: 2 MG, UNK

REACTIONS (3)
  - PAIN IN EXTREMITY [None]
  - CONTUSION [None]
  - ARTHRALGIA [None]
